FAERS Safety Report 16365026 (Version 2)
Quarter: 2019Q2

REPORT INFORMATION
  Report Type: Spontaneous
  Country: US (occurrence: US)
  Receive Date: 20190529
  Receipt Date: 20190604
  Transmission Date: 20190711
  Serious: No
  Sender: FDA-Public Use
  Company Number: US-UNITED THERAPEUTICS-UNT-2019-009254

PATIENT
  Age: 56 Year
  Sex: Male

DRUGS (3)
  1. TADALAFIL. [Concomitant]
     Active Substance: TADALAFIL
     Indication: PULMONARY ARTERIAL HYPERTENSION
     Dosage: UNK
     Route: 048
  2. ORENITRAM [Suspect]
     Active Substance: TREPROSTINIL
     Indication: PULMONARY ARTERIAL HYPERTENSION
     Dosage: 0.5 MG, TID
     Route: 048
     Dates: start: 20190507
  3. ORENITRAM [Suspect]
     Active Substance: TREPROSTINIL
     Dosage: 0.25 MG, TID
     Route: 048

REACTIONS (1)
  - Fatigue [Recovered/Resolved]

NARRATIVE: CASE EVENT DATE: 20190507
